FAERS Safety Report 14143851 (Version 2)
Quarter: 2017Q4

REPORT INFORMATION
  Report Type: Spontaneous
  Country: US (occurrence: US)
  Receive Date: 20171031
  Receipt Date: 20171104
  Transmission Date: 20180321
  Serious: Yes (Life-Threatening, Hospitalization, Other)
  Sender: FDA-Public Use
  Company Number: US-AXELLIA-001192

PATIENT
  Age: 61 Year
  Sex: Female

DRUGS (2)
  1. GENTAMICIN. [Concomitant]
     Active Substance: GENTAMICIN
     Dosage: 0.5 G GENTAMICIN IN 40 G METHYLMETHACRYLATE POWDER
  2. VANCOMYCIN [Suspect]
     Active Substance: VANCOMYCIN
     Indication: INFECTION
     Dosage: 1 G VANCOMYCIN ADDED TO COBALT HV BONE CEMENT
     Route: 042

REACTIONS (1)
  - Haemolytic anaemia [Recovered/Resolved]
